FAERS Safety Report 12597014 (Version 1)
Quarter: 2016Q3

REPORT INFORMATION
  Report Type: Spontaneous
  Country: US (occurrence: None)
  Receive Date: 20160726
  Receipt Date: 20160726
  Transmission Date: 20161109
  Serious: No
  Sender: FDA-Public Use
  Company Number: None

PATIENT
  Age: 67 Year
  Sex: Female

DRUGS (1)
  1. METHOTREXATE 25MG/ML ACCORD HEALTHCARE [Suspect]
     Active Substance: METHOTREXATE
     Indication: RHEUMATOID ARTHRITIS
     Route: 058
     Dates: start: 20151130, end: 20160530

REACTIONS (2)
  - Thrombocytopenia [None]
  - Contusion [None]

NARRATIVE: CASE EVENT DATE: 201605
